FAERS Safety Report 6271812-7 (Version None)
Quarter: 2009Q3

REPORT INFORMATION
  Report Type: 
  Country: None (occurrence: None)
  Receive Date: 20090717
  Receipt Date: 20090707
  Transmission Date: 20100115
  Serious: Yes (Other)
  Sender: FDA-Public Use
  Company Number: US-PFIZER INC-2009239443

PATIENT
  Sex: Female
  Weight: 72.562 kg

DRUGS (2)
  1. GEODON [Suspect]
     Indication: BIPOLAR I DISORDER
     Dates: start: 20090101
  2. LORAZEPAM [Concomitant]
     Indication: FEELING OF RELAXATION
     Dosage: UNK

REACTIONS (9)
  - ACTIVITIES OF DAILY LIVING IMPAIRED [None]
  - FEELING ABNORMAL [None]
  - HEART RATE INCREASED [None]
  - INSOMNIA [None]
  - MEDICATION ERROR [None]
  - MEMORY IMPAIRMENT [None]
  - RESTLESSNESS [None]
  - SOMNOLENCE [None]
  - THINKING ABNORMAL [None]
